FAERS Safety Report 9813053 (Version 1)
Quarter: 2014Q1

REPORT INFORMATION
  Report Type: Spontaneous
  Country: US (occurrence: US)
  Receive Date: 20140113
  Receipt Date: 20140113
  Transmission Date: 20141002
  Serious: Yes (Death)
  Sender: FDA-Public Use
  Company Number: US-PFIZER INC-2014004970

PATIENT
  Age: 67 Year
  Sex: Male

DRUGS (6)
  1. VENLAFAXINE HCL [Suspect]
     Dosage: UNK
     Route: 048
  2. OXYCODONE HYDROCHLORIDE [Suspect]
     Dosage: UNK
     Route: 048
  3. BENAZEPRIL [Suspect]
     Dosage: UNK
     Route: 048
  4. CITALOPRAM [Suspect]
     Dosage: UNK
     Route: 048
  5. WARFARIN [Suspect]
     Dosage: UNK
     Route: 048
  6. CODEINE, PARACETAMOL [Suspect]
     Dosage: UNK
     Route: 048

REACTIONS (2)
  - Completed suicide [Fatal]
  - Toxicity to various agents [None]
